FAERS Safety Report 13822249 (Version 1)
Quarter: 2017Q3

REPORT INFORMATION
  Report Type: Spontaneous
  Country: DZ (occurrence: DZ)
  Receive Date: 20170801
  Receipt Date: 20170801
  Transmission Date: 20171127
  Serious: Yes (Death, Hospitalization)
  Sender: FDA-Public Use
  Company Number: DZ-SA-2017SA136274

PATIENT
  Age: 63 Year
  Sex: Female

DRUGS (1)
  1. TAXOTERE [Suspect]
     Active Substance: DOCETAXEL
     Indication: BREAST CANCER
     Route: 042
     Dates: start: 20170710, end: 20170710

REACTIONS (4)
  - Blood creatinine decreased [Fatal]
  - Candida infection [Fatal]
  - Neutrophil count decreased [Fatal]
  - Diarrhoea [Fatal]
